FAERS Safety Report 23003968 (Version 2)
Quarter: 2023Q4

REPORT INFORMATION
  Report Type: Spontaneous
  Country: PT (occurrence: PT)
  Receive Date: 20230928
  Receipt Date: 20231009
  Transmission Date: 20240110
  Serious: Yes (Life-Threatening, Hospitalization)
  Sender: FDA-Public Use
  Company Number: PT-TEVA-2023-PT-2929833

PATIENT
  Age: 25 Year
  Sex: Female

DRUGS (8)
  1. BECLOMETHASONE [Suspect]
     Active Substance: BECLOMETHASONE
     Indication: Asthma
     Dosage: 500MICROG EVERY 8H
     Route: 055
  2. IPRATROPIUM [Suspect]
     Active Substance: IPRATROPIUM
     Indication: Asthma
     Dosage: 80MICROG EVERY 4H
     Route: 055
  3. ALBUTEROL [Suspect]
     Active Substance: ALBUTEROL
     Indication: Asthma
     Dosage: 200MICROG EVERY 4H
     Route: 055
  4. ALBUTEROL [Suspect]
     Active Substance: ALBUTEROL
     Indication: Asthma
     Dosage: DOSAGE: 5-10MICOG/MIN INTERMITTENTLY DURING 3 DAYS
     Route: 042
  5. METHYLPREDNISOLONE [Suspect]
     Active Substance: METHYLPREDNISOLONE
     Indication: Asthma
     Dosage: 125MG EVERY 6H (WITHDRAWAL AFTER 6 DAYS)
     Route: 042
  6. AMINOPHYLLINE [Suspect]
     Active Substance: AMINOPHYLLINE
     Indication: Asthma
     Dosage: 240MG EVERY 12H
     Route: 042
  7. MAGNESIUM SULFATE [Suspect]
     Active Substance: MAGNESIUM SULFATE
     Indication: Asthma
     Dosage: 2G EVERY 12H
     Route: 042
  8. KETAMINE [Suspect]
     Active Substance: KETAMINE
     Indication: Asthma
     Dosage: DOSAGE: 0.5-1.25MG/KG/H INTERMITTENTLY DURING 5DAYS
     Route: 042

REACTIONS (1)
  - Drug ineffective [Unknown]
